FAERS Safety Report 13672035 (Version 5)
Quarter: 2019Q4

REPORT INFORMATION
  Report Type: Report from Study
  Country: US (occurrence: US)
  Receive Date: 20170620
  Receipt Date: 20191220
  Transmission Date: 20200122
  Serious: Yes (Disabling, Other)
  Sender: FDA-Public Use
  Company Number: US-JAZZ-2017-US-007486

PATIENT
  Sex: Female

DRUGS (3)
  1. CHLORZOXAZONE. [Suspect]
     Active Substance: CHLORZOXAZONE
     Indication: MUSCLE SPASMS
  2. FIORICET [Suspect]
     Active Substance: ACETAMINOPHEN\BUTALBITAL\CAFFEINE
     Indication: HEADACHE
  3. XYREM [Suspect]
     Active Substance: SODIUM OXYBATE
     Indication: NARCOLEPSY
     Dosage: 2.25 G, BID
     Route: 048
     Dates: start: 201506, end: 201701

REACTIONS (11)
  - Therapeutic response decreased [Unknown]
  - Femur fracture [Unknown]
  - Seizure [Unknown]
  - Hip fracture [Unknown]
  - Sickle cell disease [Unknown]
  - Condition aggravated [Unknown]
  - Muscle spasms [Unknown]
  - Headache [Not Recovered/Not Resolved]
  - Back pain [Unknown]
  - Blood insulin abnormal [Unknown]
  - Feeling abnormal [Unknown]
